FAERS Safety Report 5031255-0 (Version None)
Quarter: 2006Q2

REPORT INFORMATION
  Report Type: 
  Country: None (occurrence: None)
  Receive Date: 20060619
  Receipt Date: 20060619
  Transmission Date: 20061013
  Serious: Yes (Other)
  Sender: FDA-Public Use
  Company Number: None

PATIENT
  Sex: Male
  Weight: 24.4 kg

DRUGS (2)
  1. VALPROIC ACID SYRUP [Suspect]
     Indication: EPILEPSY
     Dosage: 250 MG/5ML Q6H PO
     Route: 048
     Dates: start: 20060518, end: 20060617
  2. MERREM I.V. [Suspect]
     Indication: INFECTION
     Dosage: 500 MG Q8H IV BOLUS
     Route: 040
     Dates: start: 20060523, end: 20060531

REACTIONS (2)
  - CONVULSION [None]
  - DRUG LEVEL BELOW THERAPEUTIC [None]
